FAERS Safety Report 9471590 (Version 2)
Quarter: 2013Q3

REPORT INFORMATION
  Report Type: Spontaneous
  Country: NL (occurrence: None)
  Receive Date: 20130819
  Receipt Date: 20130830
  Transmission Date: 20140515
  Serious: Yes (Hospitalization)
  Sender: FDA-Public Use
  Company Number: 2013-3338

PATIENT
  Age: 61 Year
  Sex: Male

DRUGS (1)
  1. SOMATULINE [Suspect]
     Indication: ACROMEGALY
     Dosage: 60 MG (60 MG, 1 IN 4 WK) SUBCUTANEOUS
     Route: 058
     Dates: start: 20120828

REACTIONS (3)
  - Palpitations [None]
  - Blood viscosity increased [None]
  - Atrial flutter [None]
